FAERS Safety Report 4971843-0 (Version None)
Quarter: 2006Q2

REPORT INFORMATION
  Report Type: 
  Country: None (occurrence: None)
  Receive Date: 20060407
  Receipt Date: 20060327
  Transmission Date: 20061013
  Serious: Yes (Disabling)
  Sender: FDA-Public Use
  Company Number: GXKR2006GB01794

PATIENT
  Age: 53 Year
  Sex: Female

DRUGS (2)
  1. CITALOPRAM HYDROBROMIDE [Suspect]
     Indication: DEPRESSION
     Dosage: 20 MG, QD, ORAL
     Route: 048
     Dates: start: 20051215, end: 20051221
  2. FLUOXETINE [Concomitant]

REACTIONS (2)
  - ASTIGMATISM [None]
  - VISION BLURRED [None]
